FAERS Safety Report 9442373 (Version 1)
Quarter: 2013Q3

REPORT INFORMATION
  Report Type: Report from Study
  Country: US (occurrence: US)
  Receive Date: 20130806
  Receipt Date: 20130806
  Transmission Date: 20140515
  Serious: Yes (Congenital Anomaly)
  Sender: FDA-Public Use
  Company Number: US-UCBSA-093535

PATIENT
  Age: 0 Year
  Sex: Male
  Weight: 2.75 kg

DRUGS (6)
  1. CIMZIA [Suspect]
     Indication: CROHN^S DISEASE
     Dosage: 400 MG, 2 MONTH
     Route: 064
     Dates: start: 201202, end: 20121024
  2. PRENATAL VITAMINS [Concomitant]
     Dosage: 1 PILL
     Route: 062
     Dates: start: 201202, end: 20121024
  3. DOCOSAHEXANOIC ACID [Concomitant]
     Dosage: 1 PILL
     Route: 064
     Dates: start: 201202, end: 20121024
  4. CAFFEINE [Concomitant]
     Dosage: 1 SERVIN, 4.5 4.5 TOTAL
     Route: 064
     Dates: start: 201202, end: 20121024
  5. TYLENOL [Concomitant]
     Indication: HEADACHE
     Dosage: 1000 MG, 2 MONTH
     Route: 064
     Dates: start: 201202, end: 20121024
  6. IMODIUM [Concomitant]
     Indication: CROHN^S DISEASE
     Dosage: 4 MG, 2.5 WEEK
     Route: 064
     Dates: start: 201202, end: 20121024

REACTIONS (5)
  - Autosomal chromosome anomaly [Unknown]
  - Single functional kidney [Unknown]
  - Hypospadias [Unknown]
  - Inguinal hernia [Unknown]
  - Foetal exposure during pregnancy [Recovered/Resolved]
